FAERS Safety Report 13094883 (Version 1)
Quarter: 2017Q1

REPORT INFORMATION
  Report Type: Spontaneous
  Country: US (occurrence: US)
  Receive Date: 20170106
  Receipt Date: 20170106
  Transmission Date: 20170428
  Serious: No
  Sender: FDA-Public Use
  Company Number: US-009507513-1612USA010888

PATIENT
  Age: 53 Year
  Sex: Male

DRUGS (11)
  1. JANUMET [Suspect]
     Active Substance: METFORMIN HYDROCHLORIDE\SITAGLIPTIN PHOSPHATE
     Indication: DIABETES MELLITUS
     Dosage: 50/1000 MG, 2 IN 1 D
     Route: 048
     Dates: start: 201611
  2. VENCLEXTA [Suspect]
     Active Substance: VENETOCLAX
     Dosage: 100 MG DAILY DOSE, 1 IN 1 D
     Route: 048
     Dates: start: 20161011, end: 20161017
  3. ZOCOR [Concomitant]
     Active Substance: SIMVASTATIN
     Indication: BLOOD CHOLESTEROL INCREASED
     Dosage: 40 MG, UNK
     Route: 048
     Dates: start: 2016
  4. VENCLEXTA [Suspect]
     Active Substance: VENETOCLAX
     Dosage: 400 MG DAILY DOSE, 4 IN 1 D
     Route: 048
     Dates: start: 20161025
  5. VENCLEXTA [Suspect]
     Active Substance: VENETOCLAX
     Dosage: 50 MG DAILY DOSE, 1 IN 1 D
     Route: 048
     Dates: start: 20161004, end: 20161010
  6. GLIBOMET [Concomitant]
     Active Substance: GLYBURIDE\METFORMIN HYDROCHLORIDE
     Indication: DIABETES MELLITUS
     Dosage: 5/500 MG AS NEEDED - ONCE OR TWICE DAILY
     Route: 048
     Dates: start: 200611, end: 20161116
  7. VENCLEXTA [Suspect]
     Active Substance: VENETOCLAX
     Dosage: 200 MG DAILY DOSE, 2 IN 1 D
     Route: 048
     Dates: start: 20161018, end: 20161024
  8. VITRON-C [Concomitant]
     Dosage: 65 MG, 2 IN 1 D
     Route: 048
  9. VALSARTAN. [Concomitant]
     Active Substance: VALSARTAN
     Indication: HYPERTENSION
     Dosage: 320 MG, DAILY DOSE
     Route: 048
     Dates: start: 201601
  10. NATURE^S CHOICE [Concomitant]
     Dosage: 1 PILL, DAILY
     Route: 048
     Dates: start: 201608
  11. VENCLEXTA [Suspect]
     Active Substance: VENETOCLAX
     Indication: CHRONIC LYMPHOCYTIC LEUKAEMIA
     Dosage: 20 MG DAILY DOSE (2 IN 1 D)
     Route: 048
     Dates: start: 20160927, end: 20161003

REACTIONS (3)
  - Diarrhoea [Not Recovered/Not Resolved]
  - Cough [Not Recovered/Not Resolved]
  - Nasopharyngitis [Not Recovered/Not Resolved]

NARRATIVE: CASE EVENT DATE: 20161116
